FAERS Safety Report 11127064 (Version 3)
Quarter: 2015Q4

REPORT INFORMATION
  Report Type: Spontaneous
  Country: AR (occurrence: AR)
  Receive Date: 20150521
  Receipt Date: 20151029
  Transmission Date: 20160304
  Serious: Yes (Hospitalization, Other)
  Sender: FDA-Public Use
  Company Number: AR-AMGEN-ARGSP2015048800

PATIENT
  Age: 63 Year
  Sex: Female

DRUGS (1)
  1. ENBREL [Suspect]
     Active Substance: ETANERCEPT
     Indication: RHEUMATOID ARTHRITIS
     Dosage: 50 MG, WEEKLY
     Route: 065
     Dates: start: 20070801

REACTIONS (10)
  - Fatigue [Unknown]
  - Anaemia [Recovering/Resolving]
  - Haematemesis [Recovered/Resolved]
  - Erythema [Not Recovered/Not Resolved]
  - Blood pressure fluctuation [Unknown]
  - Pruritus [Not Recovered/Not Resolved]
  - Contusion [Not Recovered/Not Resolved]
  - Ulcer [Recovered/Resolved]
  - Hiatus hernia [Not Recovered/Not Resolved]
  - Vomiting [Recovered/Resolved]

NARRATIVE: CASE EVENT DATE: 201502
